FAERS Safety Report 20048698 (Version 2)
Quarter: 2022Q1

REPORT INFORMATION
  Report Type: Report from Study
  Country: CO (occurrence: CO)
  Receive Date: 20211109
  Receipt Date: 20220214
  Transmission Date: 20220423
  Serious: No
  Sender: FDA-Public Use
  Company Number: CO-NOVARTISPH-NVSC2021CO134465

PATIENT
  Sex: Female
  Weight: 50 kg

DRUGS (4)
  1. COSENTYX [Suspect]
     Active Substance: SECUKINUMAB
     Indication: Ankylosing spondylitis
     Dosage: 150 MG, QMO
     Route: 058
     Dates: start: 202106
  2. COSENTYX [Suspect]
     Active Substance: SECUKINUMAB
     Dosage: 150 MG, QMO
     Route: 058
     Dates: start: 20210707
  3. COSENTYX [Suspect]
     Active Substance: SECUKINUMAB
     Dosage: 150 MG, QMO
     Route: 058
  4. LOSARTAN [Suspect]
     Active Substance: LOSARTAN
     Indication: Hypertension
     Dosage: 50 MG, BID (EVERY 12 HOURS)
     Route: 048

REACTIONS (14)
  - Disease progression [Unknown]
  - Feeling abnormal [Unknown]
  - Musculoskeletal stiffness [Unknown]
  - Joint range of motion decreased [Unknown]
  - Back pain [Unknown]
  - Spinal pain [Unknown]
  - Pain [Unknown]
  - Mobility decreased [Unknown]
  - Feeling of despair [Unknown]
  - Dysstasia [Unknown]
  - Weight bearing difficulty [Unknown]
  - Exostosis [Unknown]
  - Gastritis [Unknown]
  - Off label use [Unknown]
